FAERS Safety Report 21547451 (Version 1)
Quarter: 2022Q4

REPORT INFORMATION
  Report Type: Spontaneous
  Country: US (occurrence: None)
  Receive Date: 20221102
  Receipt Date: 20221102
  Transmission Date: 20230113
  Serious: No
  Sender: FDA-Public Use
  Company Number: None

PATIENT
  Sex: Male
  Weight: 95.9 kg

DRUGS (2)
  1. CARBOPLATIN [Suspect]
     Active Substance: CARBOPLATIN
     Dates: end: 20210921
  2. TAXOL [Suspect]
     Active Substance: PACLITAXEL
     Dates: end: 20211026

REACTIONS (5)
  - Diarrhoea [None]
  - Dizziness [None]
  - Pyelonephritis [None]
  - Urinary tract infection [None]
  - Bacterial infection [None]

NARRATIVE: CASE EVENT DATE: 20211108
